FAERS Safety Report 21624381 (Version 1)
Quarter: 2022Q4

REPORT INFORMATION
  Report Type: Spontaneous
  Country: US (occurrence: US)
  Receive Date: 20221121
  Receipt Date: 20221121
  Transmission Date: 20230113
  Serious: Yes (Hospitalization, Other)
  Sender: FDA-Public Use
  Company Number: US-BRACCO-2022US02425

PATIENT
  Sex: Male

DRUGS (9)
  1. LUMASON [Suspect]
     Active Substance: SULFUR HEXAFLUORIDE
     Indication: Ultrasound kidney
     Dosage: 1.5 ML, SINGLE
     Route: 042
     Dates: start: 20220622, end: 20220622
  2. LUMASON [Suspect]
     Active Substance: SULFUR HEXAFLUORIDE
     Indication: Ultrasound kidney
     Dosage: 1.5 ML, SINGLE
     Route: 042
     Dates: start: 20220622, end: 20220622
  3. LUMASON [Suspect]
     Active Substance: SULFUR HEXAFLUORIDE
     Indication: Ultrasound kidney
     Dosage: 1.5 ML, SINGLE
     Route: 042
     Dates: start: 20220622, end: 20220622
  4. LUMASON [Suspect]
     Active Substance: SULFUR HEXAFLUORIDE
     Indication: Ultrasound kidney
     Dosage: 1.5 ML, SINGLE
     Route: 042
     Dates: start: 20220622, end: 20220622
  5. LUMASON [Suspect]
     Active Substance: SULFUR HEXAFLUORIDE
     Indication: Ultrasound kidney
     Dosage: 1.5 ML, SINGLE
     Route: 042
     Dates: start: 20220622, end: 20220622
  6. LUMASON [Suspect]
     Active Substance: SULFUR HEXAFLUORIDE
     Indication: Ultrasound kidney
     Dosage: 1.5 ML, SINGLE
     Route: 042
     Dates: start: 20220622, end: 20220622
  7. FENTANYL [Suspect]
     Active Substance: FENTANYL
     Indication: Pain
     Dosage: UNK
     Dates: start: 20220622, end: 20220622
  8. VERSED [Suspect]
     Active Substance: MIDAZOLAM HYDROCHLORIDE
     Indication: Pain
     Dosage: UNK
     Dates: start: 20220622, end: 20220622
  9. HYDRALAZINE [Concomitant]
     Active Substance: HYDRALAZINE HYDROCHLORIDE
     Indication: Blood pressure measurement
     Dosage: UNK
     Dates: start: 20220622, end: 20220622

REACTIONS (3)
  - Off label use [Recovered/Resolved]
  - Vomiting [Recovered/Resolved]
  - Nausea [Recovered/Resolved]

NARRATIVE: CASE EVENT DATE: 20220622
